FAERS Safety Report 19321553 (Version 1)
Quarter: 2021Q2

REPORT INFORMATION
  Report Type: Spontaneous
  Country: GR (occurrence: GR)
  Receive Date: 20210528
  Receipt Date: 20210528
  Transmission Date: 20210717
  Serious: Yes (Other)
  Sender: FDA-Public Use
  Company Number: GR-AMGEN-GRCSP2021077055

PATIENT

DRUGS (7)
  1. CETUXIMAB. [Concomitant]
     Active Substance: CETUXIMAB
     Dosage: 400 MILLIGRAM/SQ. METER
  2. OXALIPLATIN. [Concomitant]
     Active Substance: OXALIPLATIN
  3. IRINOTECAN [Concomitant]
     Active Substance: IRINOTECAN
  4. PANITUMUMAB [Suspect]
     Active Substance: PANITUMUMAB
     Indication: COLORECTAL CANCER METASTATIC
     Dosage: UNK
     Route: 065
  5. BEVACIZUMAB. [Suspect]
     Active Substance: BEVACIZUMAB
     Indication: COLORECTAL CANCER METASTATIC
     Dosage: UNK
     Route: 065
  6. ENCORAFENIB [Concomitant]
     Active Substance: ENCORAFENIB
     Dosage: 300 MILLIGRAM, QD
  7. CETUXIMAB. [Concomitant]
     Active Substance: CETUXIMAB
     Dosage: 250 MILLIGRAM/SQ. METER

REACTIONS (4)
  - Rash [Unknown]
  - Fatigue [Unknown]
  - Colorectal cancer metastatic [Recovering/Resolving]
  - Diarrhoea [Unknown]
